FAERS Safety Report 13913191 (Version 1)
Quarter: 2017Q3

REPORT INFORMATION
  Report Type: Spontaneous
  Country: US (occurrence: US)
  Receive Date: 20170828
  Receipt Date: 20170828
  Transmission Date: 20171127
  Serious: No
  Sender: FDA-Public Use
  Company Number: US-ROCHE-1122455

PATIENT
  Sex: Female
  Weight: 33.6 kg

DRUGS (6)
  1. TOLECTIN [Concomitant]
     Active Substance: TOLMETIN SODIUM
     Route: 065
  2. PLAQUENIL [Concomitant]
     Active Substance: HYDROXYCHLOROQUINE SULFATE
     Route: 065
  3. METHOTREXATE. [Concomitant]
     Active Substance: METHOTREXATE
     Route: 065
  4. NUTROPIN AQ [Suspect]
     Active Substance: SOMATROPIN
     Indication: HYPERPITUITARISM
     Route: 058
  5. PROCARDIA [Concomitant]
     Active Substance: NIFEDIPINE
     Route: 065
  6. PREDNISOLON [Concomitant]
     Active Substance: PREDNISOLONE
     Route: 065

REACTIONS (5)
  - Raynaud^s phenomenon [Unknown]
  - Growth failure [Unknown]
  - Malaise [Unknown]
  - Mixed connective tissue disease [Unknown]
  - Osteopenia [Unknown]
